FAERS Safety Report 8011604-1 (Version None)
Quarter: 2011Q4

REPORT INFORMATION
  Report Type: 
  Country: None (occurrence: None)
  Receive Date: 20111228
  Receipt Date: 20111219
  Transmission Date: 20120403
  Serious: Yes (Death, Other)
  Sender: FDA-Public Use
  Company Number: US-PFIZER INC-2011309462

PATIENT
  Age: 52 Year
  Sex: Female

DRUGS (9)
  1. GABAPENTIN [Suspect]
     Dosage: UNK
     Route: 048
  2. AMITRIPTYLINE HCL [Suspect]
     Dosage: UNK
     Route: 048
  3. CYCLOBENZAPRINE HCL [Suspect]
     Dosage: UNK
  4. GEMFIBROZIL [Suspect]
     Dosage: UNK
  5. AMPHETAMINES [Suspect]
     Dosage: UNK
  6. ETHANOL [Suspect]
     Dosage: UNK
  7. MORPHINE SULFATE [Suspect]
     Dosage: UNK
  8. PROPRANOLOL HCL [Suspect]
     Dosage: UNK
  9. METOCLOPRAMIDE [Suspect]
     Dosage: UNK

REACTIONS (3)
  - RESPIRATORY ARREST [None]
  - CARDIAC ARREST [None]
  - COMPLETED SUICIDE [None]
